FAERS Safety Report 15245845 (Version 1)
Quarter: 2018Q3

REPORT INFORMATION
  Report Type: Spontaneous
  Country: ZA (occurrence: ZA)
  Receive Date: 20180806
  Receipt Date: 20180806
  Transmission Date: 20181010
  Serious: Yes (Hospitalization)
  Sender: FDA-Public Use
  Company Number: PHHY2018ZA061257

PATIENT
  Age: 35 Year
  Sex: Female

DRUGS (2)
  1. AMLOC [Concomitant]
     Indication: PRODUCT USED FOR UNKNOWN INDICATION
     Route: 065
  2. CO?TAREG [Suspect]
     Active Substance: HYDROCHLOROTHIAZIDE\VALSARTAN
     Indication: HYPERTENSION
     Route: 065

REACTIONS (4)
  - Rhinovirus infection [Unknown]
  - Corona virus infection [Unknown]
  - Dyspepsia [Unknown]
  - Blood pressure increased [Unknown]
